FAERS Safety Report 21568166 (Version 1)
Quarter: 2022Q4

REPORT INFORMATION
  Report Type: Spontaneous
  Country: US (occurrence: US)
  Receive Date: 20221108
  Receipt Date: 20221108
  Transmission Date: 20230112
  Serious: No
  Sender: FDA-Public Use
  Company Number: US-MYLANLABS-2022M1118222

PATIENT
  Sex: Male
  Weight: 126.1 kg

DRUGS (3)
  1. SEMGLEE (INSULIN GLARGINE-YFGN) [Suspect]
     Active Substance: INSULIN GLARGINE-YFGN
     Indication: Type 1 diabetes mellitus
     Dosage: 32 INTERNATIONAL UNIT, BID
     Route: 058
  2. SEMGLEE (INSULIN GLARGINE-YFGN) [Suspect]
     Active Substance: INSULIN GLARGINE-YFGN
     Dosage: 32 INTERNATIONAL UNIT, BID
     Route: 058
  3. TRULICITY [Concomitant]
     Active Substance: DULAGLUTIDE
     Indication: Type 1 diabetes mellitus
     Dosage: 0.75 MILLIGRAM
     Route: 065

REACTIONS (5)
  - Headache [Unknown]
  - Fatigue [Unknown]
  - Product dose omission issue [Unknown]
  - Device issue [Unknown]
  - Device difficult to use [Unknown]
